FAERS Safety Report 6193453-2 (Version None)
Quarter: 2009Q2

REPORT INFORMATION
  Report Type: 
  Country: None (occurrence: None)
  Receive Date: 20090514
  Receipt Date: 20090514
  Transmission Date: 20091009
  Serious: No
  Sender: FDA-Public Use
  Company Number: None

PATIENT
  Age: 44 Year
  Sex: Female
  Weight: 63.5036 kg

DRUGS (5)
  1. CYMBALTA [Suspect]
     Indication: ANXIETY
     Dosage: 60MG ONCE A DAY PO
     Route: 048
     Dates: start: 20070501, end: 20081225
  2. CYMBALTA [Suspect]
     Indication: DEPRESSION
     Dosage: 60MG ONCE A DAY PO
     Route: 048
     Dates: start: 20070501, end: 20081225
  3. WELLBUTRIN [Concomitant]
  4. LORAZEPAM [Concomitant]
  5. AMBIEN [Concomitant]

REACTIONS (1)
  - DRUG WITHDRAWAL SYNDROME [None]
